FAERS Safety Report 7804295-3 (Version None)
Quarter: 2011Q4

REPORT INFORMATION
  Report Type: 
  Country: None (occurrence: None)
  Receive Date: 20111010
  Receipt Date: 20110926
  Transmission Date: 20120403
  Serious: Yes (Death, Hospitalization, Other)
  Sender: FDA-Public Use
  Company Number: US-BAYER-200921303NA

PATIENT
  Age: 81 Year
  Sex: Female
  Weight: 57.11 kg

DRUGS (4)
  1. RIVAROXABAN [Suspect]
     Indication: ACUTE CORONARY SYNDROME
     Dosage: 2.5 MG, BID
     Route: 048
     Dates: start: 20090417, end: 20090417
  2. RIVAROXABAN [Suspect]
     Dosage: 2.5 MG, BID
     Route: 048
     Dates: start: 20090418, end: 20090421
  3. PLATELETS [Concomitant]
     Indication: ACUTE CORONARY SYNDROME
     Route: 048
     Dates: start: 20090417
  4. ASPIRIN [Suspect]
     Indication: ACUTE CORONARY SYNDROME
     Route: 048
     Dates: start: 20090417

REACTIONS (2)
  - VAGINAL CANCER [None]
  - VAGINAL HAEMORRHAGE [None]
